FAERS Safety Report 4815041-X (Version None)
Quarter: 2005Q4

REPORT INFORMATION
  Report Type: 
  Country: None (occurrence: None)
  Receive Date: 20051026
  Receipt Date: 20051110
  Transmission Date: 20060501
  Serious: Yes (Other)
  Sender: FDA-Public Use
  Company Number: CA_051008860

PATIENT
  Age: 68 Year
  Sex: Female
  Weight: 45 kg

DRUGS (3)
  1. FORTEO [Suspect]
     Indication: OSTEOPOROSIS
     Dosage: 20 UG DAY
     Dates: start: 20050127
  2. ADALAT [Concomitant]
  3. ATENOLOL [Concomitant]

REACTIONS (4)
  - CANDIDIASIS [None]
  - FATIGUE [None]
  - GAIT DISTURBANCE [None]
  - PITUITARY-DEPENDENT CUSHING'S SYNDROME [None]
